FAERS Safety Report 20214535 (Version 2)
Quarter: 2021Q4

REPORT INFORMATION
  Report Type: Spontaneous
  Country: US (occurrence: US)
  Receive Date: 20211221
  Receipt Date: 20211226
  Transmission Date: 20220303
  Serious: Yes (Hospitalization)
  Sender: FDA-Public Use
  Company Number: US-BRISTOL-MYERS SQUIBB COMPANY-BMS-2021-139007

PATIENT
  Age: 71 Year
  Sex: Female

DRUGS (7)
  1. ORENCIA [Suspect]
     Active Substance: ABATACEPT
     Indication: Rheumatoid arthritis
     Dosage: 125 MILLIGRAM, QWK
     Route: 058
     Dates: start: 202003
  2. ORENCIA [Suspect]
     Active Substance: ABATACEPT
     Indication: Rheumatoid arthritis
     Dosage: 125 MILLIGRAM, QWK
     Route: 058
     Dates: start: 202003
  3. ORENCIA [Suspect]
     Active Substance: ABATACEPT
     Indication: Pathological fracture
  4. ORENCIA [Suspect]
     Active Substance: ABATACEPT
     Indication: Pathological fracture
  5. ORENCIA [Suspect]
     Active Substance: ABATACEPT
     Indication: Osteoporosis
  6. ORENCIA [Suspect]
     Active Substance: ABATACEPT
     Indication: Osteoporosis
  7. TYMLOS [Concomitant]
     Active Substance: ABALOPARATIDE
     Indication: Product used for unknown indication
     Route: 065

REACTIONS (3)
  - Rhinitis [Recovered/Resolved]
  - Sinusitis [Recovered/Resolved]
  - Eye infection [Recovered/Resolved]
